FAERS Safety Report 5612238-6 (Version None)
Quarter: 2008Q1

REPORT INFORMATION
  Report Type: 
  Country: None (occurrence: None)
  Receive Date: 20080128
  Receipt Date: 20080114
  Transmission Date: 20080703
  Serious: Yes (Hospitalization)
  Sender: FDA-Public Use
  Company Number: 08-000113

PATIENT
  Age: 48 Year
  Sex: Male

DRUGS (3)
  1. DOVONEX [Suspect]
  2. TACLONEX [Suspect]
     Indication: PSORIASIS
  3. ENTECAVIR() TABLET, .50MG [Suspect]
     Indication: HEPATITIS
     Dosage: 0.5, QD, ORAL
     Route: 048
     Dates: start: 20071201

REACTIONS (5)
  - MUSCULOSKELETAL PAIN [None]
  - PAIN IN EXTREMITY [None]
  - PARAESTHESIA [None]
  - SKIN EXFOLIATION [None]
  - THERMAL BURN [None]
